FAERS Safety Report 21213140 (Version 2)
Quarter: 2022Q3

REPORT INFORMATION
  Report Type: Spontaneous
  Country: US (occurrence: US)
  Receive Date: 20220815
  Receipt Date: 20220908
  Transmission Date: 20221026
  Serious: Yes (Death, Other)
  Sender: FDA-Public Use
  Company Number: US-INCYTE CORPORATION-2022IN007675

PATIENT

DRUGS (2)
  1. JAKAFI [Suspect]
     Active Substance: RUXOLITINIB
     Indication: Chronic lymphocytic leukaemia
     Dosage: 20 MILLIGRAM, BID
     Route: 048
     Dates: start: 20220718
  2. JAKAFI [Suspect]
     Active Substance: RUXOLITINIB
     Dosage: 20 MILLIGRAM, BID
     Route: 048
     Dates: start: 20220718, end: 20220902

REACTIONS (8)
  - Death [Fatal]
  - Asthenia [Unknown]
  - White blood cell count abnormal [Unknown]
  - Red blood cell count abnormal [Unknown]
  - Nausea [Unknown]
  - Decreased appetite [Unknown]
  - Drug ineffective for unapproved indication [Unknown]
  - Off label use [Unknown]

NARRATIVE: CASE EVENT DATE: 20220718
